FAERS Safety Report 25782877 (Version 2)
Quarter: 2025Q4

REPORT INFORMATION
  Report Type: Spontaneous
  Country: JP (occurrence: JP)
  Receive Date: 20250909
  Receipt Date: 20251014
  Transmission Date: 20260118
  Serious: Yes (Death)
  Sender: BEIGENE
  Company Number: JP-BEIGENE-BGN-2025-015366

PATIENT
  Age: 89 Year

DRUGS (1)
  1. BRUKINSA [Suspect]
     Active Substance: ZANUBRUTINIB
     Indication: Waldenstrom^s macroglobulinaemia
     Dosage: UNK

REACTIONS (2)
  - Disease progression [Fatal]
  - Drug ineffective [Unknown]
